FAERS Safety Report 16137679 (Version 1)
Quarter: 2019Q1

REPORT INFORMATION
  Report Type: Spontaneous
  Country: ES (occurrence: ES)
  Receive Date: 20190330
  Receipt Date: 20190330
  Transmission Date: 20190418
  Serious: Yes (Life-Threatening, Hospitalization, Other)
  Sender: FDA-Public Use
  Company Number: ES-AUROBINDO-AUR-APL-2019-016656

PATIENT

DRUGS (2)
  1. LETROZOLE. [Suspect]
     Active Substance: LETROZOLE
     Indication: BREAST CANCER
     Dosage: UNK (3 WEEKS OF THERAPY, 1 WEEK REST)
     Route: 065
     Dates: start: 201811
  2. KISQALI [Suspect]
     Active Substance: RIBOCICLIB
     Indication: BREAST CANCER
     Dosage: UNK (3 WEEKS OF THERAPY, 1 WEEK REST)
     Route: 065
     Dates: start: 201811

REACTIONS (17)
  - Neutropenia [Unknown]
  - Blood lactate dehydrogenase increased [Unknown]
  - Dysphagia [Unknown]
  - Electrocardiogram abnormal [Unknown]
  - Lymphadenopathy [Unknown]
  - Oral candidiasis [Unknown]
  - Temperature regulation disorder [Unknown]
  - Prerenal failure [Recovering/Resolving]
  - Stevens-Johnson syndrome [Recovering/Resolving]
  - Dermatitis bullous [Unknown]
  - Pain [Unknown]
  - Pancytopenia [Unknown]
  - Oesophageal candidiasis [Unknown]
  - Skin haemorrhage [Unknown]
  - Toxic epidermal necrolysis [Recovering/Resolving]
  - Leukopenia [Unknown]
  - Lymphopenia [Unknown]

NARRATIVE: CASE EVENT DATE: 20190208
